FAERS Safety Report 17204618 (Version 1)
Quarter: 2019Q4

REPORT INFORMATION
  Report Type: Spontaneous
  Country: US (occurrence: US)
  Receive Date: 20191226
  Receipt Date: 20191226
  Transmission Date: 20200122
  Serious: No
  Sender: FDA-Public Use
  Company Number: US-ASTRAZENECA-2019SF72950

PATIENT
  Age: 3 Year
  Sex: Male
  Weight: 35 kg

DRUGS (1)
  1. PULMICORT TURBUHALER [Suspect]
     Active Substance: BUDESONIDE
     Indication: PRODUCTIVE COUGH
     Dosage: AS REQUIRED
     Route: 055
     Dates: start: 2017

REACTIONS (7)
  - Rhinorrhoea [Not Recovered/Not Resolved]
  - Swelling face [Unknown]
  - Vomiting [Not Recovered/Not Resolved]
  - Viral test positive [Unknown]
  - Productive cough [Not Recovered/Not Resolved]
  - Cough [Not Recovered/Not Resolved]
  - Pyrexia [Recovered/Resolved]

NARRATIVE: CASE EVENT DATE: 2017
